FAERS Safety Report 9424752 (Version 1)
Quarter: 2013Q3

REPORT INFORMATION
  Report Type: Spontaneous
  Country: NL (occurrence: NL)
  Receive Date: 20130729
  Receipt Date: 20130729
  Transmission Date: 20140515
  Serious: Yes (Hospitalization)
  Sender: FDA-Public Use
  Company Number: NL-JNJFOC-20130714180

PATIENT
  Age: 60 Year
  Sex: Male

DRUGS (8)
  1. XARELTO [Suspect]
     Indication: CEREBROVASCULAR ACCIDENT PROPHYLAXIS
     Route: 048
  2. XARELTO [Suspect]
     Indication: CEREBROVASCULAR ACCIDENT PROPHYLAXIS
     Route: 048
  3. XARELTO [Suspect]
     Indication: ATRIAL FIBRILLATION
     Route: 048
  4. XARELTO [Suspect]
     Indication: ATRIAL FIBRILLATION
     Route: 048
  5. FUROSEMIDE [Concomitant]
     Route: 065
     Dates: start: 20050101
  6. IRBESARTAN [Concomitant]
     Route: 065
     Dates: start: 20050101
  7. AMIODARON [Concomitant]
     Route: 065
     Dates: start: 20130128
  8. AMLODIPINE [Concomitant]
     Route: 065
     Dates: start: 20050101

REACTIONS (2)
  - Epistaxis [Recovered/Resolved]
  - Weight increased [Unknown]
